FAERS Safety Report 6291883-1 (Version None)
Quarter: 2009Q3

REPORT INFORMATION
  Report Type: 
  Country: None (occurrence: None)
  Receive Date: 20090729
  Receipt Date: 20090720
  Transmission Date: 20100115
  Serious: Yes (Death)
  Sender: FDA-Public Use
  Company Number: 2009AL004743

PATIENT
  Sex: Male

DRUGS (1)
  1. DIGOXIN [Suspect]
     Dosage: PO
     Route: 048
     Dates: start: 19930101, end: 20070718

REACTIONS (3)
  - ECONOMIC PROBLEM [None]
  - MULTIPLE INJURIES [None]
  - UNEVALUABLE EVENT [None]
